FAERS Safety Report 19509483 (Version 1)
Quarter: 2021Q3

REPORT INFORMATION
  Report Type: Spontaneous
  Country: GB (occurrence: GB)
  Receive Date: 20210709
  Receipt Date: 20210709
  Transmission Date: 20211014
  Serious: Yes (Hospitalization)
  Sender: FDA-Public Use
  Company Number: GB-SUN PHARMACEUTICAL INDUSTRIES LTD-2021RR-303510

PATIENT
  Age: 37 Year
  Sex: Female
  Weight: 70.3 kg

DRUGS (2)
  1. CIPROFLOXACIN. [Suspect]
     Active Substance: CIPROFLOXACIN
     Indication: OSTEOMYELITIS CHRONIC
     Dosage: 500MG BD
     Route: 048
  2. CLINDAMYCIN. [Suspect]
     Active Substance: CLINDAMYCIN
     Indication: OSTEOMYELITIS CHRONIC
     Dosage: 600MG QDS
     Route: 048
     Dates: start: 20210603, end: 20210614

REACTIONS (1)
  - Platelet count decreased [Recovered/Resolved]
